FAERS Safety Report 7408803-6 (Version None)
Quarter: 2011Q2

REPORT INFORMATION
  Report Type: 
  Country: None (occurrence: None)
  Receive Date: 20110412
  Receipt Date: 20110329
  Transmission Date: 20111010
  Serious: Yes (Other)
  Sender: FDA-Public Use
  Company Number: US-CELGENEUS-163-20785-11033353

PATIENT

DRUGS (3)
  1. REVLIMID [Suspect]
     Route: 048
  2. THALOMID [Suspect]
     Route: 048
  3. BORTEZOMIB [Suspect]
     Route: 065

REACTIONS (1)
  - GRAFT VERSUS HOST DISEASE [None]
